FAERS Safety Report 25732045 (Version 1)
Quarter: 2025Q3

REPORT INFORMATION
  Report Type: Spontaneous
  Country: US (occurrence: None)
  Receive Date: 20250827
  Receipt Date: 20250827
  Transmission Date: 20251021
  Serious: No
  Sender: FDA-CTU
  Company Number: None

PATIENT
  Age: 68 Year
  Sex: Female
  Weight: 55.35 kg

DRUGS (1)
  1. TREMFYA [Suspect]
     Active Substance: GUSELKUMAB
     Indication: Colitis ulcerative
     Dates: start: 20250826, end: 20250826

REACTIONS (4)
  - Blood pressure increased [None]
  - Migraine [None]
  - Feeling abnormal [None]
  - Infusion related reaction [None]

NARRATIVE: CASE EVENT DATE: 20250826
